FAERS Safety Report 16102670 (Version 4)
Quarter: 2019Q4

REPORT INFORMATION
  Report Type: Spontaneous
  Country: JP (occurrence: JP)
  Receive Date: 20190321
  Receipt Date: 20191213
  Transmission Date: 20200122
  Serious: Yes (Other)
  Sender: FDA-Public Use
  Company Number: JP-ABBVIE-19K-087-2655081-00

PATIENT
  Sex: Female
  Weight: 55.3 kg

DRUGS (8)
  1. PREDNISOLONE. [Concomitant]
     Active Substance: PREDNISOLONE
     Route: 048
     Dates: start: 20170210, end: 20171123
  2. PREDNISOLONE. [Concomitant]
     Active Substance: PREDNISOLONE
     Route: 048
     Dates: start: 20180914
  3. RINDERON (BETAMETHASONE SODIUM PHOSPHATE) [Suspect]
     Active Substance: BETAMETHASONE SODIUM PHOSPHATE
     Indication: PRODUCT USED FOR UNKNOWN INDICATION
     Route: 047
  4. PREDNISOLONE. [Concomitant]
     Active Substance: PREDNISOLONE
     Indication: TUBULOINTERSTITIAL NEPHRITIS AND UVEITIS SYNDROME
     Route: 048
     Dates: start: 20161212, end: 20170112
  5. HUMIRA [Suspect]
     Active Substance: ADALIMUMAB
     Indication: TUBULOINTERSTITIAL NEPHRITIS AND UVEITIS SYNDROME
     Route: 058
     Dates: start: 20161111, end: 20161117
  6. PREDNISOLONE. [Concomitant]
     Active Substance: PREDNISOLONE
     Route: 048
     Dates: start: 20170113, end: 20170209
  7. HUMIRA [Suspect]
     Active Substance: ADALIMUMAB
     Route: 058
     Dates: start: 20161118
  8. PREDNISOLONE. [Concomitant]
     Active Substance: PREDNISOLONE
     Route: 048
     Dates: start: 20171124, end: 20171124

REACTIONS (3)
  - Menstruation irregular [Not Recovered/Not Resolved]
  - Cataract [Recovering/Resolving]
  - Cervical dysplasia [Not Recovered/Not Resolved]

NARRATIVE: CASE EVENT DATE: 20190118
